FAERS Safety Report 15130680 (Version 1)
Quarter: 2018Q3

REPORT INFORMATION
  Report Type: Spontaneous
  Country: IT (occurrence: IT)
  Receive Date: 20180711
  Receipt Date: 20180711
  Transmission Date: 20181010
  Serious: Yes (Hospitalization)
  Sender: FDA-Public Use
  Company Number: IT-PFIZER INC-2018277244

PATIENT
  Age: 39 Year
  Sex: Male
  Weight: 86 kg

DRUGS (1)
  1. XANAX [Suspect]
     Active Substance: ALPRAZOLAM
     Indication: ANXIETY
     Dosage: 1.25 UG, 1X/DAY
     Dates: end: 2018

REACTIONS (5)
  - Abdominal pain [Unknown]
  - Confusional state [Unknown]
  - Ataxia [Unknown]
  - Vomiting [Unknown]
  - Headache [Unknown]

NARRATIVE: CASE EVENT DATE: 20180502
